FAERS Safety Report 16750495 (Version 1)
Quarter: 2019Q3

REPORT INFORMATION
  Report Type: Spontaneous
  Country: US (occurrence: US)
  Receive Date: 20190828
  Receipt Date: 20190828
  Transmission Date: 20191005
  Serious: No
  Sender: FDA-Public Use
  Company Number: US-PFIZER INC-2019367116

PATIENT
  Age: 39 Year
  Sex: Female
  Weight: 77.11 kg

DRUGS (1)
  1. CHANTIX [Suspect]
     Active Substance: VARENICLINE TARTRATE
     Indication: SMOKING CESSATION THERAPY
     Dosage: 1 MG, 1X/DAY (ONCE AT NIGHT)
     Dates: start: 20190814

REACTIONS (5)
  - Oropharyngeal pain [Unknown]
  - Aphonia [Unknown]
  - Pruritus [Unknown]
  - Mouth swelling [Unknown]
  - Throat tightness [Unknown]
